FAERS Safety Report 17010208 (Version 3)
Quarter: 2022Q1

REPORT INFORMATION
  Report Type: Spontaneous
  Country: US (occurrence: US)
  Receive Date: 20191108
  Receipt Date: 20220308
  Transmission Date: 20220423
  Serious: No
  Sender: FDA-Public Use
  Company Number: US-PFIZER INC-2019484632

PATIENT
  Age: 65 Year
  Sex: Female

DRUGS (1)
  1. XELJANZ XR [Suspect]
     Active Substance: TOFACITINIB CITRATE
     Dosage: 11 MG
     Dates: start: 2017

REACTIONS (5)
  - Peripheral swelling [Unknown]
  - Arthralgia [Unknown]
  - Sensitivity to weather change [Unknown]
  - Mobility decreased [Unknown]
  - Hypoacusis [Unknown]
